FAERS Safety Report 23401231 (Version 1)
Quarter: 2024Q1

REPORT INFORMATION
  Report Type: Other
  Country: IN (occurrence: None)
  Receive Date: 20240115
  Receipt Date: 20240115
  Transmission Date: 20240410
  Serious: Yes (Hospitalization)
  Sender: FDA-Public Use
  Company Number: IN-ROCHE-3489896

PATIENT

DRUGS (1)
  1. MYCOPHENOLATE MOFETIL [Suspect]
     Active Substance: MYCOPHENOLATE MOFETIL
     Indication: Immune-mediated neurological disorder
     Route: 065

REACTIONS (11)
  - Sepsis [Unknown]
  - Febrile neutropenia [Unknown]
  - Necrotising fasciitis [Unknown]
  - Candida infection [Unknown]
  - Hepatic enzyme increased [Unknown]
  - Urinary tract infection [Unknown]
  - Cytomegalovirus infection [Unknown]
  - Herpes zoster [Unknown]
  - Abdominal discomfort [Unknown]
  - Cough [Unknown]
  - Leukopenia [Unknown]
